FAERS Safety Report 10989747 (Version 1)
Quarter: 2015Q2

REPORT INFORMATION
  Report Type: Report from Study
  Country: FR (occurrence: FR)
  Receive Date: 20150406
  Receipt Date: 20150406
  Transmission Date: 20150821
  Serious: Yes (Death, Hospitalization)
  Sender: FDA-Public Use
  Company Number: FR-ROCHE-1161898

PATIENT
  Age: 51 Year
  Sex: Male

DRUGS (5)
  1. METHOTREXATE [Concomitant]
     Active Substance: METHOTREXATE
     Route: 065
  2. RITUXIMAB [Suspect]
     Active Substance: RITUXIMAB
     Indication: RHEUMATOID ARTHRITIS
     Dosage: SECOND INFUSION ON 22/NOV/2006
     Route: 041
     Dates: start: 20061108
  3. PARACETAMOL [Concomitant]
     Active Substance: ACETAMINOPHEN
  4. CORTANCYL [Concomitant]
     Active Substance: PREDNISONE
     Route: 065
  5. METHYLPREDNISOLONE. [Concomitant]
     Active Substance: METHYLPREDNISOLONE
     Route: 065

REACTIONS (18)
  - Squamous cell carcinoma of lung [Fatal]
  - Pneumonia [Recovered/Resolved]
  - General physical health deterioration [Recovered/Resolved]
  - Respiratory distress [Unknown]
  - Fall [Unknown]
  - Infusion related reaction [Recovered/Resolved]
  - Respiratory failure [Unknown]
  - Phlebitis [Unknown]
  - Ankle fracture [Unknown]
  - Malaise [Unknown]
  - Pulmonary embolism [Unknown]
  - Sepsis [Unknown]
  - Multi-organ failure [Fatal]
  - Asthenia [Not Recovered/Not Resolved]
  - Pneumonia [Unknown]
  - Loss of consciousness [Unknown]
  - Urinary tract infection [Recovered/Resolved]
  - Mouth cyst [Recovered/Resolved]

NARRATIVE: CASE EVENT DATE: 20061114
